FAERS Safety Report 10387516 (Version 1)
Quarter: 2014Q3

REPORT INFORMATION
  Report Type: Spontaneous
  Country: US (occurrence: None)
  Receive Date: 20140814
  Receipt Date: 20140814
  Transmission Date: 20150326
  Serious: Yes (Other)
  Sender: FDA-Public Use
  Company Number: None

PATIENT
  Age: 79 Year
  Sex: Female
  Weight: 64.41 kg

DRUGS (7)
  1. CALCIUM CITRATE [Concomitant]
     Active Substance: CALCIUM CITRATE
  2. FLONASE [Suspect]
     Active Substance: FLUTICASONE PROPIONATE
     Indication: MULTIPLE ALLERGIES
     Dosage: 50 MCG?2 PUFFS/DAY?1X/DAY?EACH NOSTRIL ?
     Route: 045
     Dates: start: 20140716, end: 20140724
  3. C-PAP MACHINE [Concomitant]
  4. VIT. D3 [Concomitant]
  5. FLONASE [Suspect]
     Active Substance: FLUTICASONE PROPIONATE
     Indication: NASAL CONGESTION
     Dosage: 50 MCG?2 PUFFS/DAY?1X/DAY?EACH NOSTRIL ?
     Route: 045
     Dates: start: 20140716, end: 20140724
  6. CENTRUM MULTI VITAMINS [Concomitant]
  7. IBUPROFEN. [Concomitant]
     Active Substance: IBUPROFEN

REACTIONS (2)
  - Fatigue [None]
  - Somnolence [None]

NARRATIVE: CASE EVENT DATE: 20120716
